FAERS Safety Report 4811416-3 (Version None)
Quarter: 2005Q4

REPORT INFORMATION
  Report Type: 
  Country: None (occurrence: None)
  Receive Date: 20051026
  Receipt Date: 20051026
  Transmission Date: 20060501
  Serious: Yes (Death, Hospitalization)
  Sender: FDA-Public Use
  Company Number: None

PATIENT
  Sex: Female
  Weight: 76.6 kg

DRUGS (4)
  1. METHOTREXATE [Suspect]
     Indication: CENTRAL NERVOUS SYSTEM LYMPHOMA
     Dosage: SEE IMAGE
     Dates: start: 20050910, end: 20050910
  2. LEUCOVORIN [Suspect]
     Dosage: SEE IMAGE
     Dates: start: 20050910
  3. TEMOZOLOMIDE [Suspect]
     Dosage: SEE IMAGE
  4. RITUXIMAB [Suspect]
     Dosage: SEE IMAGE
     Dates: start: 20050910

REACTIONS (2)
  - DISEASE PROGRESSION [None]
  - MENTAL STATUS CHANGES [None]
